FAERS Safety Report 8481904-X (Version None)
Quarter: 2012Q2

REPORT INFORMATION
  Report Type: 
  Country: None (occurrence: None)
  Receive Date: 20120402
  Receipt Date: 20111005
  Transmission Date: 20120825
  Serious: Yes (Hospitalization)
  Sender: FDA-Public Use
  Company Number: A-US2011-55146

PATIENT
  Age: 31 Year
  Sex: Female

DRUGS (2)
  1. TADALAFIL [Concomitant]
  2. TRACLEER [Suspect]
     Indication: PULMONARY ARTERIAL HYPERTENSION
     Dosage: ORAL
     Route: 048
     Dates: start: 20110729

REACTIONS (3)
  - DYSPNOEA [None]
  - PRESYNCOPE [None]
  - DIZZINESS [None]
